FAERS Safety Report 8334896 (Version 5)
Quarter: 2015Q1

REPORT INFORMATION
  Report Type: Spontaneous
  Country: JP (occurrence: JP)
  Receive Date: 20120112
  Receipt Date: 20150216
  Transmission Date: 20150721
  Serious: Yes (Hospitalization, Other)
  Sender: FDA-Public Use
  Company Number: JP-GLAXOSMITHKLINE-B0774551A

PATIENT
  Age: 30 Year
  Sex: Female

DRUGS (6)
  1. MYSLEE [Concomitant]
     Active Substance: ZOLPIDEM TARTRATE
     Indication: INSOMNIA
     Dosage: 10 MG, QD
     Route: 048
     Dates: start: 20101112, end: 20111222
  2. LAMICTAL [Suspect]
     Active Substance: LAMOTRIGINE
     Dosage: 25 MG, QOD
     Route: 048
     Dates: start: 20111115, end: 20111128
  3. BALDEKEN-R [Suspect]
     Active Substance: VALPROIC ACID
     Indication: BIPOLAR I DISORDER
     Route: 048
     Dates: end: 20111222
  4. SEPAZON [Concomitant]
     Active Substance: CLOXAZOLAM
     Indication: ANXIETY
     Dosage: 2 MG, PRN
     Dates: end: 20111222
  5. LAMICTAL [Suspect]
     Active Substance: LAMOTRIGINE
     Dosage: 25 MG, QD
     Route: 048
     Dates: start: 20111129, end: 20111215
  6. LAMICTAL [Suspect]
     Active Substance: LAMOTRIGINE
     Dosage: 50 MG, QD
     Route: 048
     Dates: start: 20111216, end: 20111221

REACTIONS (19)
  - Erythema multiforme [Unknown]
  - Lip erosion [Unknown]
  - Stomatitis [Recovered/Resolved]
  - Oculomucocutaneous syndrome [Recovered/Resolved]
  - Ocular hyperaemia [Unknown]
  - General symptom [Unknown]
  - Oral mucosa erosion [Unknown]
  - Vulval disorder [Unknown]
  - Generalised erythema [Unknown]
  - Bacterial infection [Unknown]
  - Genital discomfort [Recovering/Resolving]
  - Erythema of eyelid [Unknown]
  - Rash [Recovered/Resolved]
  - Drug eruption [Recovered/Resolved]
  - Diarrhoea [Unknown]
  - Abdominal discomfort [Unknown]
  - Pyrexia [Unknown]
  - Glossodynia [Unknown]
  - Pruritus [Recovered/Resolved]

NARRATIVE: CASE EVENT DATE: 20111207
